FAERS Safety Report 15685566 (Version 2)
Quarter: 2019Q1

REPORT INFORMATION
  Report Type: Spontaneous
  Country: US (occurrence: US)
  Receive Date: 20181204
  Receipt Date: 20190315
  Transmission Date: 20190417
  Serious: No
  Sender: FDA-Public Use
  Company Number: US-PFIZER INC-2018490167

PATIENT
  Age: 61 Year
  Sex: Female
  Weight: 68.27 kg

DRUGS (3)
  1. ESTRING [Suspect]
     Active Substance: ESTRADIOL
     Indication: DYSPAREUNIA
     Dosage: UNK UNK, EVERY 3 MONTHS [1 INJECTION EVERY 3 MONTHS]
     Route: 067
     Dates: start: 201712, end: 20181120
  2. ESTRING [Suspect]
     Active Substance: ESTRADIOL
     Indication: ATROPHIC VULVOVAGINITIS
  3. ESTRING [Suspect]
     Active Substance: ESTRADIOL
     Indication: VULVOVAGINAL DRYNESS
     Dosage: UNK
     Route: 067

REACTIONS (3)
  - Vaginal odour [Unknown]
  - Vaginal discharge [Unknown]
  - Product quality issue [Unknown]

NARRATIVE: CASE EVENT DATE: 201810
